FAERS Safety Report 5031070-8 (Version None)
Quarter: 2006Q2

REPORT INFORMATION
  Report Type: 
  Country: None (occurrence: None)
  Receive Date: 20060621
  Receipt Date: 20060613
  Transmission Date: 20061013
  Serious: Yes (Other)
  Sender: FDA-Public Use
  Company Number: US-JNJFOC-20060603413

PATIENT
  Age: 3 Year
  Sex: Female

DRUGS (8)
  1. CHILDREN'S TYLENOL [Suspect]
     Indication: RHINORRHOEA
  2. CHILDREN'S TYLENOL [Suspect]
     Indication: COUGH
  3. CHILDREN'S TYLENOL [Suspect]
     Indication: NASOPHARYNGITIS
  4. CHILDREN'S TYLENOL [Suspect]
     Indication: PYREXIA
  5. CHILDREN'S BENADRYL ALLERGY [Suspect]
     Indication: RHINORRHOEA
  6. CHILDREN'S BENADRYL ALLERGY [Suspect]
     Indication: COUGH
  7. CHILDREN'S BENADRYL ALLERGY [Suspect]
     Indication: NASOPHARYNGITIS
     Dosage: 7.5ML
  8. CHILDREN'S BENADRYL ALLERGY [Suspect]
     Indication: PYREXIA
     Dosage: 7.5ML

REACTIONS (3)
  - FATIGUE [None]
  - PARTIAL SEIZURES [None]
  - VOMITING [None]
